FAERS Safety Report 25554004 (Version 1)
Quarter: 2025Q3

REPORT INFORMATION
  Report Type: Spontaneous
  Country: CA (occurrence: CA)
  Receive Date: 20250715
  Receipt Date: 20250715
  Transmission Date: 20251020
  Serious: Yes (Hospitalization)
  Sender: RANBAXY
  Company Number: CA-SUN PHARMACEUTICAL INDUSTRIES INC-2025R1-516405

PATIENT
  Age: 62 Year
  Sex: Male
  Weight: 80 kg

DRUGS (1)
  1. TESTOSTERONE [Suspect]
     Active Substance: TESTOSTERONE
     Indication: Andropause
     Dosage: 100 MILLIGRAM, WEEKLY
     Route: 058

REACTIONS (4)
  - Tachycardia [Recovering/Resolving]
  - Atrial flutter [Recovering/Resolving]
  - Blood testosterone increased [Recovering/Resolving]
  - Palpitations [Recovering/Resolving]
